FAERS Safety Report 25913843 (Version 1)
Quarter: 2025Q4

REPORT INFORMATION
  Report Type: Spontaneous
  Country: US (occurrence: US)
  Receive Date: 20251013
  Receipt Date: 20251013
  Transmission Date: 20260117
  Serious: No
  Sender: SANOFI AVENTIS
  Company Number: US-SA-2025SA301893

PATIENT
  Age: 17 Year
  Sex: Male

DRUGS (1)
  1. ALTUVIIIO [Suspect]
     Active Substance: EFANESOCTOCOG ALFA
     Dosage: 2930 U
     Route: 042

REACTIONS (3)
  - Contusion [Unknown]
  - Skin laceration [Unknown]
  - Fall [Unknown]

NARRATIVE: CASE EVENT DATE: 20251005
